FAERS Safety Report 24461370 (Version 1)
Quarter: 2024Q4

REPORT INFORMATION
  Report Type: Spontaneous
  Country: US (occurrence: US)
  Receive Date: 20241018
  Receipt Date: 20241018
  Transmission Date: 20250115
  Serious: No
  Sender: BRISTOL-MYERS SQUIBB COMPANY
  Company Number: US-BRISTOL-MYERS SQUIBB COMPANY-2024-163400

PATIENT
  Age: 59 Year
  Sex: Female

DRUGS (2)
  1. ZEPOSIA [Suspect]
     Active Substance: OZANIMOD HYDROCHLORIDE
     Indication: Multiple sclerosis
     Dosage: FREQUENCY: 1 TIME A DAY
     Route: 048
     Dates: start: 202404
  2. VUMERITY [Concomitant]
     Active Substance: DIROXIMEL FUMARATE
     Indication: Product used for unknown indication

REACTIONS (2)
  - Gastrointestinal disorder [Unknown]
  - Multiple sclerosis relapse [Unknown]

NARRATIVE: CASE EVENT DATE: 20240901
